FAERS Safety Report 21480267 (Version 1)
Quarter: 2022Q4

REPORT INFORMATION
  Report Type: Spontaneous
  Country: US (occurrence: US)
  Receive Date: 20221019
  Receipt Date: 20221019
  Transmission Date: 20230113
  Serious: Yes (Death, Life-Threatening, Hospitalization)
  Sender: FDA-Public Use
  Company Number: US-MYLANLABS-2022M1115695

PATIENT
  Age: 64 Year
  Sex: Female

DRUGS (13)
  1. NIFEDIPINE [Suspect]
     Active Substance: NIFEDIPINE
     Indication: Product used for unknown indication
     Dosage: UNK
     Route: 065
  2. CARVEDILOL [Suspect]
     Active Substance: CARVEDILOL
     Indication: Product used for unknown indication
     Dosage: UNK
     Route: 065
  3. NOREPINEPHRINE [Suspect]
     Active Substance: NOREPINEPHRINE
     Indication: Shock
     Dosage: UNK
     Route: 065
  4. EPINEPHRINE [Suspect]
     Active Substance: EPINEPHRINE
     Indication: Shock
     Dosage: UNK
     Route: 065
  5. LOSARTAN [Suspect]
     Active Substance: LOSARTAN
     Indication: Product used for unknown indication
     Dosage: UNK
     Route: 065
  6. PHENYLEPHRINE [Suspect]
     Active Substance: PHENYLEPHRINE HYDROCHLORIDE
     Indication: Shock
     Dosage: UNK
     Route: 065
  7. VASOPRESSIN [Suspect]
     Active Substance: VASOPRESSIN
     Indication: Shock
     Dosage: UNK
     Route: 065
  8. DOPAMINE [Suspect]
     Active Substance: DOPAMINE HYDROCHLORIDE
     Indication: Shock
     Dosage: UNK
     Route: 065
  9. ACTIVATED CHARCOAL [Suspect]
     Active Substance: ACTIVATED CHARCOAL
     Indication: Shock
     Dosage: UNK
     Route: 065
  10. INSULIN NOS [Suspect]
     Active Substance: INSULIN NOS
     Indication: Shock
     Dosage: 1 INTERNATIONAL UNIT/KILOGRAM, QD (INTRAVENOUS BOLUS)
     Route: 042
  11. INSULIN NOS [Suspect]
     Active Substance: INSULIN NOS
     Dosage: 11 INTERNATIONAL UNIT/KILOGRAM, QH (INTRAVENOUS INFUSION)
     Route: 042
  12. DEXTROSE [Suspect]
     Active Substance: DEXTROSE
     Indication: Shock
     Dosage: UNK (INFUSION)
     Route: 042
  13. CALCIUM GLUCONATE [Suspect]
     Active Substance: CALCIUM GLUCONATE
     Indication: Shock
     Dosage: UNK
     Route: 065

REACTIONS (4)
  - Completed suicide [Fatal]
  - Intentional overdose [Fatal]
  - Shock [Fatal]
  - Drug ineffective [Fatal]
